FAERS Safety Report 20910715 (Version 1)
Quarter: 2022Q2

REPORT INFORMATION
  Report Type: Spontaneous
  Country: CA (occurrence: None)
  Receive Date: 20220603
  Receipt Date: 20220603
  Transmission Date: 20220720
  Serious: Yes (Death)
  Sender: FDA-Public Use
  Company Number: CA-ROCHE-3108634

PATIENT
  Age: 70 Year
  Sex: Male

DRUGS (3)
  1. CLONAZEPAM [Suspect]
     Active Substance: CLONAZEPAM
     Indication: Product used for unknown indication
     Route: 048
  2. APOMORPHINE [Concomitant]
     Active Substance: APOMORPHINE
  3. APOMORPHINE HYDROCHLORIDE [Concomitant]
     Active Substance: APOMORPHINE HYDROCHLORIDE

REACTIONS (3)
  - Drug withdrawal syndrome [Fatal]
  - Irritability [Fatal]
  - Sleep disorder [Fatal]
